FAERS Safety Report 6349789-5 (Version None)
Quarter: 2009Q3

REPORT INFORMATION
  Report Type: 
  Country: None (occurrence: None)
  Receive Date: 20090911
  Receipt Date: 20090907
  Transmission Date: 20100115
  Serious: Yes (Death, Hospitalization)
  Sender: FDA-Public Use
  Company Number: ES-WYE-G04382809

PATIENT
  Age: 93 Year
  Sex: Female
  Weight: 60 kg

DRUGS (8)
  1. TYGACIL [Suspect]
     Dosage: UNKNOWN
     Dates: start: 20090601
  2. TYGACIL [Suspect]
     Dosage: UNKNOWN
     Dates: start: 20090901
  3. CLEXANE [Concomitant]
     Dosage: UNKNOWN
  4. NITROPLAST [Concomitant]
     Dosage: UNKNOWN
  5. ZANTAC [Concomitant]
     Dosage: UNKNOWN
  6. ATROVENT [Concomitant]
     Dosage: UNKNOWN
  7. BUSCAPINA [Concomitant]
     Dosage: UNKNOWN
  8. DIGOXIN [Concomitant]
     Dosage: UNKNOWN

REACTIONS (3)
  - CHOLECYSTITIS [None]
  - JAUNDICE CHOLESTATIC [None]
  - MULTI-ORGAN FAILURE [None]
